FAERS Safety Report 16276288 (Version 1)
Quarter: 2019Q2

REPORT INFORMATION
  Report Type: Spontaneous
  Country: US (occurrence: US)
  Receive Date: 20190505
  Receipt Date: 20190505
  Transmission Date: 20190711
  Serious: Yes (Other)
  Sender: FDA-Public Use
  Company Number: US-TORRENT-00008562

PATIENT
  Sex: Male
  Weight: 86 kg

DRUGS (2)
  1. LOSARTAN. [Suspect]
     Active Substance: LOSARTAN
     Indication: BLOOD PRESSURE ABNORMAL
     Dosage: FROM 6-7 YEARS
  2. AMLODIPINE BYSALTE [Concomitant]
     Indication: CARDIAC DISORDER
     Dosage: SINCE 2010 -2011

REACTIONS (1)
  - Prostate cancer [Not Recovered/Not Resolved]
